FAERS Safety Report 10050923 (Version 1)
Quarter: 2014Q2

REPORT INFORMATION
  Report Type: Spontaneous
  Country: US (occurrence: US)
  Receive Date: 20140401
  Receipt Date: 20140401
  Transmission Date: 20141212
  Serious: Yes (Other)
  Sender: FDA-Public Use
  Company Number: US-AMGEN-USASP2014022395

PATIENT
  Age: 56 Year
  Sex: Male

DRUGS (3)
  1. ENBREL [Suspect]
     Indication: PSORIASIS
     Dosage: UNK
     Route: 065
  2. ENBREL [Suspect]
     Indication: PSORIATIC ARTHROPATHY
  3. ENBREL [Suspect]
     Indication: RHEUMATOID ARTHRITIS

REACTIONS (5)
  - Calcinosis [Unknown]
  - Hypoaesthesia [Not Recovered/Not Resolved]
  - Sciatica [Not Recovered/Not Resolved]
  - Injury [Unknown]
  - Psoriasis [Not Recovered/Not Resolved]
